FAERS Safety Report 7481129-0 (Version None)
Quarter: 2011Q2

REPORT INFORMATION
  Report Type: 
  Country: None (occurrence: None)
  Receive Date: 20110516
  Receipt Date: 20110509
  Transmission Date: 20111010
  Serious: Yes (Hospitalization, Other)
  Sender: FDA-Public Use
  Company Number: US-SANOFI-AVENTIS-2011SA029581

PATIENT
  Age: 43 Year
  Sex: Male

DRUGS (20)
  1. HUMIRA [Suspect]
     Route: 058
     Dates: start: 20100101
  2. METHOTREXATE [Concomitant]
  3. ALPRAZOLAM [Concomitant]
     Dosage: 2 MG, EXTENDED RELEASE 1-2 PER DAY
  4. CHLORMEZANONE [Suspect]
     Route: 065
     Dates: end: 20090801
  5. ERGOCALCIFEROL [Concomitant]
  6. LAMIVUDINE [Concomitant]
     Route: 048
     Dates: start: 20110101
  7. ARIPIPRAZOLE [Concomitant]
     Route: 048
  8. LAMOTRIGINE [Concomitant]
  9. VITAMIN B COMPLEX CAP [Concomitant]
  10. CELECOXIB [Concomitant]
     Dosage: AND AS REQUIRED
  11. DULOXETINE HYDROCHLORIDE [Concomitant]
  12. ALOES [Concomitant]
     Dosage: TO SCALP (0.5 TO SCALP)
  13. AMBIEN [Suspect]
     Indication: SLEEP DISORDER
     Route: 048
     Dates: end: 20090801
  14. RESTORIL [Suspect]
     Route: 065
  15. SERTRALINE HYDROCHLORIDE [Concomitant]
  16. ALPRAZOLAM [Concomitant]
     Route: 048
  17. FOLIC ACID [Concomitant]
  18. CLOBETASOL PROPIONATE [Concomitant]
     Indication: PSORIASIS
     Dosage: 0.05 FOAM TO SCALP
     Route: 061
     Dates: start: 20110201
  19. HUMIRA [Suspect]
     Indication: RHEUMATOID ARTHRITIS
     Route: 058
     Dates: end: 20090801
  20. DIPROLENE [Concomitant]
     Dosage: 0.05 TO SCALP

REACTIONS (10)
  - WOUND COMPLICATION [None]
  - BLOOD BLISTER [None]
  - COMPARTMENT SYNDROME [None]
  - PSORIASIS [None]
  - OEDEMA PERIPHERAL [None]
  - FINGER DEFORMITY [None]
  - SKIN LESION [None]
  - LIMB DISCOMFORT [None]
  - PSORIATIC ARTHROPATHY [None]
  - JOINT RANGE OF MOTION DECREASED [None]
